FAERS Safety Report 9768046 (Version 2)
Quarter: 2013Q4

REPORT INFORMATION
  Report Type: Spontaneous
  Country: JP (occurrence: JP)
  Receive Date: 20131217
  Receipt Date: 20131217
  Transmission Date: 20140711
  Serious: Yes (Life-Threatening, Other)
  Sender: FDA-Public Use
  Company Number: JP-PFIZER INC-2013340811

PATIENT
  Age: 88 Year
  Sex: Male

DRUGS (2)
  1. LYRICA [Suspect]
     Dosage: 50 MG, DAILY
     Route: 048
     Dates: start: 20131115
  2. METOLATE [Suspect]
     Indication: RHEUMATOID ARTHRITIS
     Dosage: UNK
     Route: 048
     Dates: start: 2006, end: 20131126

REACTIONS (1)
  - Bone marrow failure [Recovered/Resolved]
